FAERS Safety Report 16940498 (Version 2)
Quarter: 2019Q4

REPORT INFORMATION
  Report Type: Spontaneous
  Country: US (occurrence: US)
  Receive Date: 20191021
  Receipt Date: 20191115
  Transmission Date: 20200122
  Serious: Yes (Other)
  Sender: FDA-Public Use
  Company Number: US-SUNOVION-2019SUN004483

PATIENT
  Age: 57 Year
  Sex: Female
  Weight: 77.1 kg

DRUGS (2)
  1. LATUDA [Suspect]
     Active Substance: LURASIDONE HYDROCHLORIDE
     Indication: SCHIZOPHRENIA
     Dosage: 120 MG
     Route: 048
     Dates: start: 20190911, end: 20190924
  2. LATUDA [Suspect]
     Active Substance: LURASIDONE HYDROCHLORIDE
     Dosage: 40 MG, QD
     Route: 048
     Dates: start: 20190924

REACTIONS (3)
  - Akathisia [Recovered/Resolved]
  - Psychotic disorder [Recovering/Resolving]
  - Major depression [Recovering/Resolving]

NARRATIVE: CASE EVENT DATE: 20190914
